FAERS Safety Report 8610870-9 (Version None)
Quarter: 2012Q3

REPORT INFORMATION
  Report Type: 
  Country: None (occurrence: None)
  Receive Date: 20120822
  Receipt Date: 20120816
  Transmission Date: 20120928
  Serious: Yes (Hospitalization, Disabling, Other)
  Sender: FDA-Public Use
  Company Number: DE-SANOFI-AVENTIS-2012SA043985

PATIENT
  Sex: Male
  Weight: 104 kg

DRUGS (17)
  1. HYDROCHLOROTHIAZIDE [Concomitant]
     Indication: HYPERTENSION
  2. MULTAQ [Suspect]
     Route: 048
     Dates: start: 20100124
  3. PANTOPRAZOLE [Concomitant]
  4. RAMIPRIL [Concomitant]
  5. TORSEMIDE [Concomitant]
  6. SIMVASTATIN [Concomitant]
  7. PLAVIX [Concomitant]
     Indication: STENT PLACEMENT
     Route: 048
     Dates: start: 20100106
  8. MULTAQ [Suspect]
     Route: 048
     Dates: start: 20100124
  9. METOPROLOL TARTRATE [Concomitant]
     Route: 048
  10. MARCUMAR [Concomitant]
     Route: 048
  11. RAMIPRIL [Concomitant]
     Indication: HYPERTENSION
     Route: 048
  12. EZETIMIBE [Concomitant]
  13. CLOPIDOGREL BISULFATE [Concomitant]
  14. FLUVASTATIN SODIUM [Concomitant]
  15. METOPROLOL TARTRATE [Concomitant]
     Indication: TACHYARRHYTHMIA
     Route: 048
  16. EMBOLEX [Concomitant]
     Route: 058
  17. ISOSORBIDE DINITRATE [Concomitant]

REACTIONS (6)
  - POLYNEUROPATHY [None]
  - GAIT DISTURBANCE [None]
  - HYPOAESTHESIA [None]
  - COORDINATION ABNORMAL [None]
  - PARALYSIS [None]
  - MUSCULAR WEAKNESS [None]
